FAERS Safety Report 6208537-X (Version None)
Quarter: 2009Q2

REPORT INFORMATION
  Report Type: 
  Country: None (occurrence: None)
  Receive Date: 20090529
  Receipt Date: 20090520
  Transmission Date: 20091009
  Serious: Yes (Other)
  Sender: FDA-Public Use
  Company Number: US-SOLVAY-00209002726

PATIENT
  Age: 575 Month
  Sex: Female
  Weight: 77.272 kg

DRUGS (1)
  1. PROMETRIUM [Suspect]
     Indication: MENSTRUATION IRREGULAR
     Dosage: DAILY DOSE: 100 MILLIGRAM(S), AS USED: 100 MG, FREQUENCY: 21 DAYS ON 7 DAYS OFF, MONTHLY
     Route: 048
     Dates: start: 20080501

REACTIONS (1)
  - PLEURAL EFFUSION [None]
